FAERS Safety Report 14584229 (Version 1)
Quarter: 2018Q1

REPORT INFORMATION
  Report Type: Spontaneous
  Country: US (occurrence: US)
  Receive Date: 20180228
  Receipt Date: 20180228
  Transmission Date: 20180509
  Serious: No
  Sender: FDA-Public Use
  Company Number: US-IRONWOOD PHARMACEUTICALS, INC.-IRWD2018000011

PATIENT
  Age: 67 Year
  Sex: Male

DRUGS (1)
  1. DUZALLO [Suspect]
     Active Substance: ALLOPURINOL\LESINURAD
     Indication: GOUT
     Dosage: UNK MG, QD
     Route: 048

REACTIONS (3)
  - Peripheral swelling [Unknown]
  - Rash [Unknown]
  - Pharyngeal oedema [Unknown]
